FAERS Safety Report 5926808-9 (Version None)
Quarter: 2008Q4

REPORT INFORMATION
  Report Type: 
  Country: None (occurrence: None)
  Receive Date: 20081022
  Receipt Date: 20080714
  Transmission Date: 20090506
  Serious: Yes (Other)
  Sender: FDA-Public Use
  Company Number: US-WYE-H06418508

PATIENT
  Sex: Male

DRUGS (1)
  1. DEXTROMETHORPHAN HYDROBROMIDE [Suspect]
     Dosage: 50 MG OF ^PURE DXM^; ON HIGH DOSES OF DXM
     Route: 048

REACTIONS (6)
  - ABNORMAL BEHAVIOUR [None]
  - CARDIAC DISORDER [None]
  - DISSOCIATION [None]
  - DRUG DEPENDENCE [None]
  - ELEVATED MOOD [None]
  - INTENTIONAL OVERDOSE [None]
